FAERS Safety Report 24547897 (Version 1)
Quarter: 2024Q4

REPORT INFORMATION
  Report Type: Spontaneous
  Country: BE (occurrence: BE)
  Receive Date: 20241025
  Receipt Date: 20241025
  Transmission Date: 20250115
  Serious: Yes (Other)
  Sender: ROCHE
  Company Number: BE-ROCHE-10000115962

PATIENT

DRUGS (1)
  1. MABTHERA [Suspect]
     Active Substance: RITUXIMAB
     Indication: Thrombotic thrombocytopenic purpura
     Route: 065

REACTIONS (3)
  - Thrombotic thrombocytopenic purpura [Unknown]
  - Hypersensitivity [Unknown]
  - Off label use [Unknown]
